FAERS Safety Report 17225214 (Version 1)
Quarter: 2020Q1

REPORT INFORMATION
  Report Type: Spontaneous
  Country: US (occurrence: US)
  Receive Date: 20200101
  Receipt Date: 20200101
  Transmission Date: 20200409
  Serious: No
  Sender: FDA-Public Use
  Company Number: None

PATIENT
  Age: 59 Year
  Sex: Female
  Weight: 65.7 kg

DRUGS (7)
  1. DESVENLAFAXINE SUC ER [Suspect]
     Active Substance: DESVENLAFAXINE SUCCINATE
     Indication: ANXIETY
     Dosage: ?          QUANTITY:1 TABLET(S);?
     Route: 048
     Dates: start: 20191120, end: 20191230
  2. VITAMIN D3 4000 IU [Concomitant]
  3. CALCIUM 600MG [Concomitant]
  4. VENLAFAXINE 25MG [Concomitant]
  5. METHYLCOBALAMIN 50 MCG [Concomitant]
  6. METHYLFOLATE 1MG [Concomitant]
  7. DESVENLAFAXINE SUC ER [Suspect]
     Active Substance: DESVENLAFAXINE SUCCINATE
     Indication: DEPRESSION
     Dosage: ?          QUANTITY:1 TABLET(S);?
     Route: 048
     Dates: start: 20191120, end: 20191230

REACTIONS (5)
  - Oedema peripheral [None]
  - Contusion [None]
  - Skin discolouration [None]
  - Tenderness [None]
  - Spontaneous haematoma [None]

NARRATIVE: CASE EVENT DATE: 20191223
